FAERS Safety Report 13954349 (Version 2)
Quarter: 2017Q3

REPORT INFORMATION
  Report Type: Report from Study
  Country: AR (occurrence: AR)
  Receive Date: 20170911
  Receipt Date: 20170927
  Transmission Date: 20171128
  Serious: Yes (Hospitalization)
  Sender: FDA-Public Use
  Company Number: PHHY2017AR133603

PATIENT
  Sex: Male

DRUGS (1)
  1. ENTRESTO [Suspect]
     Active Substance: SACUBITRIL\VALSARTAN
     Indication: CARDIAC FAILURE CHRONIC
     Dosage: 0.5 DF, BID (HALF TABLET IN THE MORNING AND HALF TABLET AT NIGHT)
     Route: 065

REACTIONS (9)
  - Drug prescribing error [Not Recovered/Not Resolved]
  - Dyspnoea [Recovered/Resolved]
  - Fluid retention [Not Recovered/Not Resolved]
  - Nasopharyngitis [Unknown]
  - Oedema peripheral [Not Recovered/Not Resolved]
  - Wrong technique in product usage process [Not Recovered/Not Resolved]
  - Ejection fraction decreased [Unknown]
  - Cardiac failure [Recovering/Resolving]
  - Hypertension [Unknown]
